FAERS Safety Report 5845203-4 (Version None)
Quarter: 2008Q3

REPORT INFORMATION
  Report Type: 
  Country: None (occurrence: None)
  Receive Date: 20080812
  Receipt Date: 20080801
  Transmission Date: 20090109
  Serious: Yes (Hospitalization)
  Sender: FDA-Public Use
  Company Number: 2008BI019006

PATIENT
  Age: 43 Year
  Sex: Female

DRUGS (1)
  1. TYSABRI [Suspect]
     Indication: MULTIPLE SCLEROSIS
     Dosage: 300 MG; QM; IV
     Route: 042
     Dates: start: 20080201, end: 20080601

REACTIONS (4)
  - ALANINE AMINOTRANSFERASE INCREASED [None]
  - CONVULSION [None]
  - INFLUENZA LIKE ILLNESS [None]
  - MUSCLE INJURY [None]
